FAERS Safety Report 12443249 (Version 1)
Quarter: 2016Q2

REPORT INFORMATION
  Report Type: Spontaneous
  Country: US (occurrence: US)
  Receive Date: 20160607
  Receipt Date: 20160607
  Transmission Date: 20160815
  Serious: Yes (Other)
  Sender: FDA-Public Use
  Company Number: US-ASTRAZENECA-2016SE58517

PATIENT
  Sex: Female

DRUGS (17)
  1. TOPROL XL [Concomitant]
     Active Substance: METOPROLOL SUCCINATE
     Route: 048
  2. VITAMIN B12 [Concomitant]
     Active Substance: CYANOCOBALAMIN
  3. LASIX [Concomitant]
     Active Substance: FUROSEMIDE
  4. HUMALOG [Concomitant]
     Active Substance: INSULIN LISPRO
  5. COZAAR [Concomitant]
     Active Substance: LOSARTAN POTASSIUM
  6. ONDANSTRON [Concomitant]
     Dosage: AS REQUIRED
  7. OXYCODONE [Concomitant]
     Active Substance: OXYCODONE
     Indication: BACK PAIN
     Dosage: 5 MG EVERY 6 HOURS AS REQUIRED
  8. SENNA [Concomitant]
     Active Substance: SENNA LEAF\SENNOSIDES\SENNOSIDES A AND B
  9. ASA [Concomitant]
     Active Substance: ASPIRIN
     Dosage: 81.0MG UNKNOWN
  10. NORVASC [Concomitant]
     Active Substance: AMLODIPINE BESYLATE
  11. CEFDINIR. [Concomitant]
     Active Substance: CEFDINIR
     Indication: URINARY TRACT INFECTION
  12. ZOLOFT [Concomitant]
     Active Substance: SERTRALINE HYDROCHLORIDE
  13. MOVANTIK [Suspect]
     Active Substance: NALOXEGOL OXALATE
     Indication: CONSTIPATION
     Route: 048
     Dates: start: 20160529
  14. OMEPRIZOLE [Concomitant]
  15. MIRALAX [Concomitant]
     Active Substance: POLYETHYLENE GLYCOL 3350
  16. SYNTHROID [Concomitant]
     Active Substance: LEVOTHYROXINE SODIUM
  17. OPAITES [Concomitant]

REACTIONS (3)
  - Drug ineffective [Unknown]
  - Constipation [Unknown]
  - Abdominal pain [Unknown]
